FAERS Safety Report 18159789 (Version 1)
Quarter: 2020Q3

REPORT INFORMATION
  Report Type: Spontaneous
  Country: US (occurrence: US)
  Receive Date: 20200818
  Receipt Date: 20200818
  Transmission Date: 20201103
  Serious: Yes (Other)
  Sender: FDA-Public Use
  Company Number: US-LEADINGPHARMA-US-2020LEALIT00131

PATIENT
  Age: 70 Year
  Sex: Female

DRUGS (1)
  1. HYDROCHLOROTHIAZIDE TABLETS USP [Suspect]
     Active Substance: HYDROCHLOROTHIAZIDE
     Indication: MENIERE^S DISEASE
     Route: 048

REACTIONS (2)
  - Squamous cell carcinoma [Unknown]
  - Product use in unapproved indication [Unknown]
